FAERS Safety Report 6956401-0 (Version None)
Quarter: 2010Q3

REPORT INFORMATION
  Report Type: 
  Country: None (occurrence: None)
  Receive Date: 20100830
  Receipt Date: 20100819
  Transmission Date: 20110219
  Serious: Yes (Hospitalization)
  Sender: FDA-Public Use
  Company Number: B0550850C

PATIENT
  Sex: Female
  Weight: 56.5 kg

DRUGS (5)
  1. LAPATINIB [Suspect]
     Indication: BREAST CANCER
     Dosage: 1500MG PER DAY
     Route: 048
     Dates: start: 20080814
  2. PACLITAXEL [Suspect]
     Indication: BREAST CANCER
     Dosage: 80MGM2 WEEKLY
     Route: 042
     Dates: start: 20080925
  3. FLUOROURACIL [Suspect]
     Indication: BREAST CANCER
     Dosage: 775MG SINGLE DOSE
     Route: 042
     Dates: start: 20090202, end: 20090202
  4. EPIRUBICIN [Suspect]
     Indication: BREAST CANCER
     Dosage: 151MG SINGLE DOSE
     Route: 042
     Dates: start: 20090202, end: 20090202
  5. CYCLOPHOSPHAMIDE [Suspect]
     Indication: BREAST CANCER
     Dosage: 755MG SINGLE DOSE
     Route: 042
     Dates: start: 20090202, end: 20090202

REACTIONS (4)
  - FEBRILE NEUTROPENIA [None]
  - MUCOSAL INFLAMMATION [None]
  - OROPHARYNGEAL PAIN [None]
  - PYREXIA [None]
